FAERS Safety Report 11271506 (Version 2)
Quarter: 2015Q3

REPORT INFORMATION
  Report Type: Report from Study
  Country: US (occurrence: US)
  Receive Date: 20150714
  Receipt Date: 20150903
  Transmission Date: 20151125
  Serious: Yes (Other)
  Sender: FDA-Public Use
  Company Number: US-GILEAD-2015-0163058

PATIENT
  Age: 75 Year
  Sex: Female

DRUGS (4)
  1. AMBRISENTAN [Suspect]
     Active Substance: AMBRISENTAN
     Indication: PULMONARY ARTERIOPATHY
     Dosage: 5 MG, QD
     Route: 065
     Dates: start: 20150616
  2. AMBRISENTAN [Suspect]
     Active Substance: AMBRISENTAN
     Indication: SCLERODERMA
  3. SILDENAFIL. [Concomitant]
     Active Substance: SILDENAFIL
  4. AMBRISENTAN [Suspect]
     Active Substance: AMBRISENTAN
     Indication: PULMONARY HYPERTENSION

REACTIONS (4)
  - Muscle spasms [Recovering/Resolving]
  - Cardiac failure congestive [Recovering/Resolving]
  - Swelling [Recovering/Resolving]
  - Fear [Recovering/Resolving]
